FAERS Safety Report 24319481 (Version 1)
Quarter: 2024Q3

REPORT INFORMATION
  Report Type: Spontaneous
  Country: BR (occurrence: BR)
  Receive Date: 20240914
  Receipt Date: 20240914
  Transmission Date: 20241016
  Serious: Yes (Hospitalization)
  Sender: CELLTRION
  Company Number: BR-CELLTRION INC.-2024BR021428

PATIENT

DRUGS (1)
  1. INFLIXIMAB [Suspect]
     Active Substance: INFLIXIMAB
     Indication: Rheumatoid arthritis
     Dosage: UNK
     Route: 042
     Dates: start: 20240725

REACTIONS (1)
  - Hospitalisation [Unknown]
